FAERS Safety Report 10597235 (Version 1)
Quarter: 2014Q4

REPORT INFORMATION
  Report Type: Spontaneous
  Country: CA (occurrence: CA)
  Receive Date: 20141121
  Receipt Date: 20141121
  Transmission Date: 20150529
  Serious: Yes (Disabling)
  Sender: FDA-Public Use
  Company Number: CA-AMGEN-CANSP2014090483

PATIENT
  Age: 68 Year
  Sex: Female
  Weight: 77 kg

DRUGS (1)
  1. PROLIA [Suspect]
     Active Substance: DENOSUMAB
     Indication: PRODUCT USED FOR UNKNOWN INDICATION
     Dosage: 60 MG, Q6MO
     Route: 058

REACTIONS (1)
  - Osteonecrosis [Recovered/Resolved]
